FAERS Safety Report 11599484 (Version 1)
Quarter: 2015Q3

REPORT INFORMATION
  Report Type: Spontaneous
  Country: US (occurrence: US)
  Receive Date: 20150916
  Receipt Date: 20150916
  Transmission Date: 20151125
  Serious: No
  Sender: FDA-Public Use
  Company Number: US-ELI_LILLY_AND_COMPANY-US200711006115

PATIENT
  Sex: Female

DRUGS (8)
  1. FORTEO [Suspect]
     Active Substance: TERIPARATIDE
     Dosage: UNK, UNK
     Dates: start: 200709
  2. ASPIRIN. [Concomitant]
     Active Substance: ASPIRIN
     Dosage: 81 UNK, UNK
  3. FLONASE [Concomitant]
     Active Substance: FLUTICASONE PROPIONATE
  4. PATANOL [Concomitant]
     Active Substance: OLOPATADINE HYDROCHLORIDE
  5. COREG [Concomitant]
     Active Substance: CARVEDILOL
     Dosage: 25 MG, 2/D
  6. ZESTRIL /USA/ [Concomitant]
     Dosage: 20 UNK, 2/D
  7. ZOCOR [Concomitant]
     Active Substance: SIMVASTATIN
     Dosage: 20 UNK, UNK
  8. ALLEGRA [Concomitant]
     Active Substance: FEXOFENADINE HYDROCHLORIDE

REACTIONS (1)
  - Inguinal hernia [Recovering/Resolving]

NARRATIVE: CASE EVENT DATE: 20071123
